FAERS Safety Report 4296989-4 (Version None)
Quarter: 2004Q1

REPORT INFORMATION
  Report Type: 
  Country: None (occurrence: None)
  Receive Date: 20040217
  Receipt Date: 20040206
  Transmission Date: 20041129
  Serious: Yes (Hospitalization)
  Sender: FDA-Public Use
  Company Number: US-BRISTOL-MYERS SQUIBB COMPANY-12499182

PATIENT
  Sex: Female

DRUGS (1)
  1. EXCEDRIN [Suspect]
     Dates: end: 20030501

REACTIONS (2)
  - DENTAL CARIES [None]
  - TOOTH EROSION [None]
